FAERS Safety Report 5897624-1 (Version None)
Quarter: 2008Q3

REPORT INFORMATION
  Report Type: 
  Country: None (occurrence: None)
  Receive Date: 20080923
  Receipt Date: 20080910
  Transmission Date: 20090109
  Serious: Yes (Hospitalization)
  Sender: FDA-Public Use
  Company Number: TNZFR200800144

PATIENT
  Age: 87 Year
  Sex: Female

DRUGS (3)
  1. INNOHEP [Suspect]
     Indication: PULMONARY EMBOLISM
     Dosage: (1000 IU,DAILY), SUBCUTANEOUS
     Route: 058
     Dates: start: 20080427, end: 20080429
  2. PREVISCAN              (FLUINDIONE) [Suspect]
     Indication: PULMONARY EMBOLISM
     Dosage: ORAL
     Route: 048
     Dates: start: 20080428, end: 20080429
  3. PREVISCAN              (FLUINDIONE) [Suspect]
     Indication: PULMONARY EMBOLISM
     Dosage: ORAL
     Route: 048
     Dates: start: 20080430

REACTIONS (1)
  - DRUG RASH WITH EOSINOPHILIA AND SYSTEMIC SYMPTOMS [None]
